FAERS Safety Report 9449866 (Version 2)
Quarter: 2013Q3

REPORT INFORMATION
  Report Type: Spontaneous
  Country: US (occurrence: US)
  Receive Date: 20130809
  Receipt Date: 20130916
  Transmission Date: 20140515
  Serious: No
  Sender: FDA-Public Use
  Company Number: US-PFIZER INC-2013231577

PATIENT
  Age: 71 Year
  Sex: Female

DRUGS (3)
  1. LYRICA [Suspect]
     Indication: SCIATICA
     Dosage: 100 MG, 2X/DAY
     Dates: start: 201307, end: 2013
  2. LYRICA [Suspect]
     Dosage: 100 MG, 1X/DAY
     Dates: start: 2013
  3. LYRICA [Suspect]

REACTIONS (6)
  - Intentional drug misuse [Unknown]
  - Oedema peripheral [Not Recovered/Not Resolved]
  - Bladder disorder [Not Recovered/Not Resolved]
  - Nervousness [Recovered/Resolved]
  - Headache [Not Recovered/Not Resolved]
  - Feeling jittery [Unknown]
